FAERS Safety Report 16429983 (Version 1)
Quarter: 2019Q2

REPORT INFORMATION
  Report Type: Spontaneous
  Country: FR (occurrence: FR)
  Receive Date: 20190614
  Receipt Date: 20190614
  Transmission Date: 20190711
  Serious: Yes (Hospitalization)
  Sender: FDA-Public Use
  Company Number: FR-TEVA-2019-FR-1062494

PATIENT
  Age: 80 Year
  Sex: Female

DRUGS (2)
  1. RIFAMPICINE [Suspect]
     Active Substance: RIFAMPIN
     Indication: SUPERINFECTION BACTERIAL
     Route: 048
     Dates: start: 20190410, end: 20190504
  2. OFLOXACINE [Suspect]
     Active Substance: OFLOXACIN
     Indication: SUPERINFECTION BACTERIAL
     Route: 048
     Dates: start: 20190410, end: 20190504

REACTIONS (1)
  - Rash maculo-papular [Recovered/Resolved]

NARRATIVE: CASE EVENT DATE: 20190504
